FAERS Safety Report 5873645-X (Version None)
Quarter: 2008Q3

REPORT INFORMATION
  Report Type: 
  Country: None (occurrence: None)
  Receive Date: 20080908
  Receipt Date: 20080902
  Transmission Date: 20090109
  Serious: Yes (Hospitalization)
  Sender: FDA-Public Use
  Company Number: A0745405A

PATIENT
  Age: 38 Year
  Sex: Female

DRUGS (3)
  1. LAMICTAL [Suspect]
     Indication: BIPOLAR DISORDER
     Route: 048
     Dates: start: 20080301
  2. CLONAZEPAM [Concomitant]
  3. HALDOL [Concomitant]

REACTIONS (10)
  - ANGER [None]
  - COGNITIVE DISORDER [None]
  - DEPRESSION [None]
  - HOMICIDAL IDEATION [None]
  - HOMICIDE [None]
  - HOSTILITY [None]
  - MALAISE [None]
  - SKIN LACERATION [None]
  - SUICIDAL IDEATION [None]
  - SUICIDE ATTEMPT [None]
